FAERS Safety Report 9329580 (Version 1)
Quarter: 2013Q2

REPORT INFORMATION
  Report Type: Spontaneous
  Country: US (occurrence: US)
  Receive Date: 20130604
  Receipt Date: 20130604
  Transmission Date: 20140414
  Serious: Yes (Other)
  Sender: FDA-Public Use
  Company Number: US-BAYER-2013-065775

PATIENT
  Age: 4 Year
  Sex: Male
  Weight: 14 kg

DRUGS (6)
  1. OXYMETAZOLINE HYDROCHLORIDE [Suspect]
     Route: 045
  2. OXYGEN [Concomitant]
     Indication: INDUCTION OF ANAESTHESIA
  3. NITROUS OXIDE [Concomitant]
     Indication: INDUCTION OF ANAESTHESIA
  4. SEVOFLURANE [Concomitant]
     Indication: INDUCTION OF ANAESTHESIA
  5. PROPOFOL [Concomitant]
     Indication: ANAESTHESIA
     Dosage: 45 MG, UNK
     Route: 042
  6. FENTANYL [Concomitant]
     Indication: ANAESTHESIA
     Dosage: 30 ?G, UNK
     Route: 042

REACTIONS (3)
  - Hypertensive crisis [None]
  - Accidental overdose [None]
  - Off label use [None]
